FAERS Safety Report 4929577-4 (Version None)
Quarter: 2006Q1

REPORT INFORMATION
  Report Type: 
  Country: None (occurrence: None)
  Receive Date: 20060224
  Receipt Date: 20060214
  Transmission Date: 20060701
  Serious: Yes (Death)
  Sender: FDA-Public Use
  Company Number: R301484-PAP-USA

PATIENT
  Age: 88 Year
  Sex: Male
  Weight: 59.8 kg

DRUGS (1)
  1. ACIPHEX [Suspect]
     Dosage: 20 MG, 1 IN 1 D, ORAL
     Route: 048

REACTIONS (1)
  - DEATH [None]
